FAERS Safety Report 7623321-8 (Version None)
Quarter: 2011Q3

REPORT INFORMATION
  Report Type: 
  Country: None (occurrence: None)
  Receive Date: 20110720
  Receipt Date: 20110705
  Transmission Date: 20111222
  Serious: Yes (Hospitalization)
  Sender: FDA-Public Use
  Company Number: CH-SANOFI-AVENTIS-2011SA044061

PATIENT
  Sex: Male
  Weight: 80 kg

DRUGS (7)
  1. ASPIRIN [Concomitant]
     Route: 065
  2. RAMIPRIL [Concomitant]
     Route: 065
  3. FLUVASTATIN [Concomitant]
     Route: 065
  4. METFORMIN HCL [Concomitant]
     Route: 065
  5. DRONEDARONE HCL [Suspect]
     Indication: ATRIAL FIBRILLATION
     Route: 048
     Dates: start: 20110209, end: 20110326
  6. THIAZIDES [Concomitant]
     Route: 065
  7. ACENOCOUMAROL [Concomitant]
     Route: 065

REACTIONS (1)
  - SYNCOPE [None]
